FAERS Safety Report 20860726 (Version 1)
Quarter: 2022Q2

REPORT INFORMATION
  Report Type: Spontaneous
  Country: US (occurrence: None)
  Receive Date: 20220523
  Receipt Date: 20220523
  Transmission Date: 20220721
  Serious: Yes (Death)
  Sender: FDA-Public Use
  Company Number: US-FARMAPROD-202205-0854

PATIENT
  Age: 80 Year
  Sex: Female

DRUGS (18)
  1. OXERVATE [Suspect]
     Active Substance: CENEGERMIN-BKBJ
     Indication: Neurotrophic keratopathy
     Route: 047
     Dates: start: 20220331
  2. PERFOROMIST [Concomitant]
     Active Substance: FORMOTEROL FUMARATE DIHYDRATE
     Dosage: 20MCG/2ML VIALFOR NEBULIZER
  3. IRON [Concomitant]
     Active Substance: IRON
     Dosage: 159(45) MG
  4. NOVOLIN NOS [Concomitant]
     Active Substance: INSULIN HUMAN
     Dosage: 70-30/ML VIAL
  5. PREDNISONE [Concomitant]
     Active Substance: PREDNISONE
  6. POTASSIUM [Concomitant]
     Active Substance: POTASSIUM
     Dosage: 595(99) MG
  7. OMEPRAZOLE [Concomitant]
     Active Substance: OMEPRAZOLE
  8. VITAMINS [Concomitant]
     Active Substance: VITAMINS
  9. MONTELUKAST SODIUM [Concomitant]
     Active Substance: MONTELUKAST SODIUM
  10. METOPROLOL SUCCINATE [Concomitant]
     Active Substance: METOPROLOL SUCCINATE
  11. LOVASTATIN [Concomitant]
     Active Substance: LOVASTATIN
  12. LEVOTHYROXINE [Concomitant]
     Active Substance: LEVOTHYROXINE
  13. FUROSEMIDE [Concomitant]
     Active Substance: FUROSEMIDE
  14. ASPIRIN [Concomitant]
     Active Substance: ASPIRIN
  15. ALBUTEROL SULFATE [Concomitant]
     Active Substance: ALBUTEROL SULFATE
     Dosage: HYDROFLUOROALKANE
  16. ONDANSETRON HCL [Concomitant]
     Active Substance: ONDANSETRON HYDROCHLORIDE
  17. GEMCITABINE HYDROCHLORIDE [Concomitant]
     Active Substance: GEMCITABINE HYDROCHLORIDE
     Dosage: 100MG/ML VIAL
  18. YUPELRI [Concomitant]
     Active Substance: REVEFENACIN
     Dosage: 175MCG/3ML VIAL FOR NEBULIZER

REACTIONS (1)
  - Death [Fatal]

NARRATIVE: CASE EVENT DATE: 20220505
